FAERS Safety Report 25278849 (Version 3)
Quarter: 2025Q3

REPORT INFORMATION
  Report Type: Spontaneous
  Country: CA (occurrence: CA)
  Receive Date: 20250507
  Receipt Date: 20250730
  Transmission Date: 20251021
  Serious: Yes (Hospitalization, Other)
  Sender: PFIZER
  Company Number: CA-PFIZER INC-202500073043

PATIENT
  Age: 45 Year
  Sex: Male
  Weight: 79.5 kg

DRUGS (3)
  1. IXIFI [Suspect]
     Active Substance: INFLIXIMAB-QBTX
     Indication: Crohn^s disease
     Route: 042
     Dates: start: 20250503
  2. IXIFI [Suspect]
     Active Substance: INFLIXIMAB-QBTX
     Route: 042
     Dates: start: 20250727
  3. IXIFI [Suspect]
     Active Substance: INFLIXIMAB-QBTX
     Route: 042
     Dates: start: 20250727

REACTIONS (4)
  - Hernia [Unknown]
  - Myocardial infarction [Unknown]
  - Atrioventricular block [Unknown]
  - Off label use [Unknown]

NARRATIVE: CASE EVENT DATE: 20250101
